FAERS Safety Report 9915473 (Version 1)
Quarter: 2014Q1

REPORT INFORMATION
  Report Type: Spontaneous
  Country: MX (occurrence: MX)
  Receive Date: 20140221
  Receipt Date: 20140221
  Transmission Date: 20141002
  Serious: Yes (Other)
  Sender: FDA-Public Use
  Company Number: MX-AMGEN-MEXSP2014011295

PATIENT
  Age: 52 Year
  Sex: Female

DRUGS (1)
  1. VECTIBIX [Suspect]
     Indication: COLON CANCER METASTATIC
     Dosage: EACH 2 WEEKS (6MG/KG OF WEIGHT, 400MG) IN THIRD CYCLE
     Route: 042
     Dates: start: 201312

REACTIONS (2)
  - Dermatitis atopic [Not Recovered/Not Resolved]
  - Pain [Unknown]
